FAERS Safety Report 5332071-2 (Version None)
Quarter: 2007Q2

REPORT INFORMATION
  Report Type: 
  Country: None (occurrence: None)
  Receive Date: 20070521
  Receipt Date: 20060703
  Transmission Date: 20071010
  Serious: Yes (Hospitalization)
  Sender: FDA-Public Use
  Company Number: 6032364

PATIENT
  Age: 70 Year
  Sex: Female

DRUGS (5)
  1. CIPROFLOXACIN [Suspect]
     Indication: PNEUMONIA
     Dosage: 800 MG (800 MG, 1 IN 1 D)
     Route: 042
  2. OLANZAPINE [Suspect]
     Indication: DRUG USE FOR UNKNOWN INDICATION
     Dosage: 10 MG (10 MG, 1 IN 1 D)
  3. AZATHIOPRINE [Concomitant]
  4. VALSARTAN [Concomitant]
  5. FUROSEMIDE [Concomitant]

REACTIONS (17)
  - BUNDLE BRANCH BLOCK LEFT [None]
  - CARDIAC FAILURE [None]
  - COUGH [None]
  - CREPITATIONS [None]
  - DRUG INTERACTION [None]
  - DYSPNOEA [None]
  - ECHOCARDIOGRAM ABNORMAL [None]
  - EJECTION FRACTION DECREASED [None]
  - ELECTROCARDIOGRAM QT CORRECTED INTERVAL PROLONGED [None]
  - ELECTROCARDIOGRAM QT PROLONGED [None]
  - LEUKOCYTOSIS [None]
  - LUNG INFILTRATION [None]
  - PALLOR [None]
  - PNEUMONIA [None]
  - PYREXIA [None]
  - TACHYPNOEA [None]
  - VENTRICULAR EXTRASYSTOLES [None]
